FAERS Safety Report 9203444 (Version 2)
Quarter: 2013Q2

REPORT INFORMATION
  Report Type: Spontaneous
  Country: US (occurrence: None)
  Receive Date: 20120709
  Receipt Date: 20121107
  Transmission Date: 20140414
  Serious: Yes (Other)
  Sender: FDA-Public Use
  Company Number: 2012HGS-003695

PATIENT
  Age: 43 Year
  Sex: Female
  Weight: 67.13 kg

DRUGS (4)
  1. BENLYSTA [Suspect]
     Indication: SYSTEMIC LUPUS ERYTHEMATOSUS
     Route: 041
     Dates: start: 20120502, end: 20120522
  2. ESTRADIOL (ESTRADIOL) (ESTRADIOL) [Concomitant]
     Dosage: 1 IN 1D
  3. PROPANOLOL (PROPRANOLOL) (PROPRANOLOL) [Concomitant]
     Dosage: 1 IN 1D
  4. EXCEDRINE (VINCENTS/00110301/) (ACETYLSALICYLIC ACID, CAFFEINE,SALICYAMIDE) [Concomitant]
     Indication: MIGRAINE
     Dosage: AS NEEDED

REACTIONS (2)
  - Chest pain [None]
  - Palpitations [None]
